FAERS Safety Report 17013488 (Version 1)
Quarter: 2019Q4

REPORT INFORMATION
  Report Type: Spontaneous
  Country: DE (occurrence: DE)
  Receive Date: 20191110
  Receipt Date: 20191110
  Transmission Date: 20200122
  Serious: Yes (Other)
  Sender: FDA-Public Use
  Company Number: NVSC2019DE026396

PATIENT
  Sex: Female

DRUGS (2)
  1. COSENTYX [Suspect]
     Active Substance: SECUKINUMAB
     Indication: PSORIATIC ARTHROPATHY
     Dosage: 150 MG, QMO
     Route: 065
  2. COSENTYX [Suspect]
     Active Substance: SECUKINUMAB
     Dosage: 300 MG, QMO (STARTED IN JUN OR JUL)
     Route: 065

REACTIONS (11)
  - Ear discomfort [Unknown]
  - Hepatic cirrhosis [Unknown]
  - Vaginal infection [Unknown]
  - Rash [Unknown]
  - Erythema [Unknown]
  - Lacrimation increased [Unknown]
  - Eye irritation [Unknown]
  - Psoriasis [Unknown]
  - Rash macular [Unknown]
  - Oral pain [Unknown]
  - Skin laceration [Unknown]
